FAERS Safety Report 5035388-4 (Version None)
Quarter: 2006Q2

REPORT INFORMATION
  Report Type: 
  Country: None (occurrence: None)
  Receive Date: 20060622
  Receipt Date: 20060612
  Transmission Date: 20061013
  Serious: Yes (Other)
  Sender: FDA-Public Use
  Company Number: 2006-DE-03029GD

PATIENT
  Age: 56 Year
  Sex: Female

DRUGS (2)
  1. PREDNISONE (PREDNISONE) [Suspect]
     Indication: COELIAC DISEASE
     Dosage: 20 MG
  2. CAMPATH [Suspect]
     Indication: COELIAC DISEASE
     Dosage: 30 MG TWO TIMES PER WEEK (TWO TIMES PER WEEK)

REACTIONS (7)
  - ATROPHY [None]
  - CONDITION AGGRAVATED [None]
  - CYTOMEGALOVIRUS INFECTION [None]
  - GASTROINTESTINAL DISORDER [None]
  - HYPERPLASIA [None]
  - LYMPHOCYTE COUNT INCREASED [None]
  - T-LYMPHOCYTE COUNT INCREASED [None]
